FAERS Safety Report 19063707 (Version 2)
Quarter: 2021Q2

REPORT INFORMATION
  Report Type: Spontaneous
  Country: CA (occurrence: CA)
  Receive Date: 20210326
  Receipt Date: 20210417
  Transmission Date: 20210717
  Serious: Yes (Disabling, Other)
  Sender: FDA-Public Use
  Company Number: NVSC2021CA055503

PATIENT
  Age: 81 Year
  Sex: Male

DRUGS (1)
  1. BROLUCIZUMAB. [Suspect]
     Active Substance: BROLUCIZUMAB
     Indication: AGE-RELATED MACULAR DEGENERATION
     Dosage: UNK
     Route: 031
     Dates: start: 20210217

REACTIONS (10)
  - Eye pain [Recovering/Resolving]
  - Iritis [Recovering/Resolving]
  - Ocular hyperaemia [Recovering/Resolving]
  - Retinal perivascular sheathing [Recovering/Resolving]
  - Anterior chamber cell [Recovered/Resolved]
  - Eye haemorrhage [Recovered/Resolved]
  - Optic nerve disorder [Recovering/Resolving]
  - Retinitis [Recovering/Resolving]
  - Retinal vasculitis [Recovering/Resolving]
  - Iridocyclitis [Recovering/Resolving]

NARRATIVE: CASE EVENT DATE: 20210224
